FAERS Safety Report 6222163-8 (Version None)
Quarter: 2009Q2

REPORT INFORMATION
  Report Type: 
  Country: None (occurrence: None)
  Receive Date: 20090611
  Receipt Date: 20090602
  Transmission Date: 20091009
  Serious: Yes (Hospitalization)
  Sender: FDA-Public Use
  Company Number: VN-ROCHE-635693

PATIENT
  Age: 60 Year
  Sex: Female

DRUGS (1)
  1. PEGASYS [Suspect]
     Route: 065
     Dates: start: 20090407

REACTIONS (3)
  - COUGH [None]
  - LUNG INJURY [None]
  - PYREXIA [None]
